FAERS Safety Report 6076821-9 (Version None)
Quarter: 2009Q1

REPORT INFORMATION
  Report Type: 
  Country: None (occurrence: None)
  Receive Date: 20090211
  Receipt Date: 20090127
  Transmission Date: 20090719
  Serious: Yes (Life-Threatening, Hospitalization)
  Sender: FDA-Public Use
  Company Number: 2009US000216

PATIENT
  Age: 66 Year
  Sex: Male

DRUGS (1)
  1. ADENOSCAN [Suspect]
     Indication: SCAN MYOCARDIAL PERFUSION
     Dosage: 63 MG, TOTAL DOSE, IV NOS
     Route: 042
     Dates: start: 20090120, end: 20090120

REACTIONS (3)
  - HYPERTENSIVE CRISIS [None]
  - PULMONARY OEDEMA [None]
  - RESPIRATORY DISTRESS [None]
